FAERS Safety Report 18602391 (Version 6)
Quarter: 2022Q2

REPORT INFORMATION
  Report Type: Report from Study
  Country: JP (occurrence: JP)
  Receive Date: 20201211
  Receipt Date: 20220519
  Transmission Date: 20220721
  Serious: Yes (Other)
  Sender: FDA-Public Use
  Company Number: JP-CELLTRION INC.-2020JP024824

PATIENT

DRUGS (10)
  1. INFLIXIMAB [Suspect]
     Active Substance: INFLIXIMAB
     Indication: Colitis ulcerative
     Dosage: 360 MILLIGRAM (WEIGHT: 71.5 KG)
     Route: 041
     Dates: start: 20181013, end: 20181013
  2. INFLIXIMAB [Suspect]
     Active Substance: INFLIXIMAB
     Dosage: 365 MILLIGRAM (WEIGHT: 72.5 KG)
     Route: 041
     Dates: start: 20181211, end: 20181211
  3. INFLIXIMAB [Suspect]
     Active Substance: INFLIXIMAB
     Dosage: 345 MILLIGRAM (WEIGHT: 69 KG)
     Route: 041
     Dates: start: 20190205, end: 20190205
  4. INFLIXIMAB [Suspect]
     Active Substance: INFLIXIMAB
     Dosage: 350 MILLIGRAM (WEIGHT: 69.6 KG)
     Route: 041
     Dates: start: 20190402, end: 20190402
  5. INFLIXIMAB [Suspect]
     Active Substance: INFLIXIMAB
     Dosage: 350 MILLIGRAM (WEIGHT: 69.6 KG)
     Route: 041
     Dates: start: 20190917, end: 20190917
  6. INFLIXIMAB [Suspect]
     Active Substance: INFLIXIMAB
     Dosage: 350 MILLIGRAM (WEIGHT: 70 KG)
     Route: 041
     Dates: start: 20201028, end: 20201028
  7. INFLIXIMAB [Suspect]
     Active Substance: INFLIXIMAB
     Dosage: 360 MILLIGRAM (WEIGHT: 72.3 KG)
     Route: 041
     Dates: start: 20211005, end: 20211005
  8. AZATHIOPRINE [Concomitant]
     Active Substance: AZATHIOPRINE
     Indication: Colitis ulcerative
     Dosage: 100 MILLIGRAM/DAY
     Route: 048
     Dates: end: 20191111
  9. AZATHIOPRINE [Concomitant]
     Active Substance: AZATHIOPRINE
     Dosage: 50 MILLIGRAM/DAY
     Route: 048
     Dates: start: 20191112, end: 20200425
  10. AZATHIOPRINE [Concomitant]
     Active Substance: AZATHIOPRINE
     Dosage: 100 MG/DAY
     Route: 048
     Dates: start: 20200502

REACTIONS (14)
  - Nephrolithiasis [Not Recovered/Not Resolved]
  - Helicobacter infection [Recovered/Resolved]
  - Hyperlipidaemia [Not Recovered/Not Resolved]
  - Chronic gastritis [Not Recovered/Not Resolved]
  - Gastric polyps [Not Recovered/Not Resolved]
  - Alopecia [Not Recovered/Not Resolved]
  - Nasopharyngitis [Recovered/Resolved]
  - Gastroenteritis [Recovered/Resolved]
  - Hypertension [Not Recovered/Not Resolved]
  - Rash [Not Recovered/Not Resolved]
  - Nasopharyngitis [Unknown]
  - Off label use [Unknown]
  - Underdose [Unknown]
  - Overdose [Unknown]

NARRATIVE: CASE EVENT DATE: 20181105
